FAERS Safety Report 16499949 (Version 1)
Quarter: 2019Q2

REPORT INFORMATION
  Report Type: Spontaneous
  Country: US (occurrence: US)
  Receive Date: 20190520
  Receipt Date: 20190520
  Transmission Date: 20190711
  Serious: No
  Sender: FDA-Public Use
  Company Number: None

PATIENT
  Age: 23 Year
  Sex: Female
  Weight: 72.57 kg

DRUGS (1)
  1. NORGEST-ETH ESTRADIOL TRIPHASIC 50-30 (06)/75-40 (05)/125-30 (10) TABL [Suspect]
     Active Substance: ETHINYL ESTRADIOL\NORGESTIMATE
     Indication: CONTRACEPTION
     Route: 048
     Dates: start: 201905

REACTIONS (3)
  - Crying [None]
  - Abnormal behaviour [None]
  - Depression [None]

NARRATIVE: CASE EVENT DATE: 20190503
